FAERS Safety Report 7383851-3 (Version None)
Quarter: 2011Q1

REPORT INFORMATION
  Report Type: 
  Country: None (occurrence: None)
  Receive Date: 20110330
  Receipt Date: 20110324
  Transmission Date: 20110831
  Serious: Yes (Other)
  Sender: FDA-Public Use
  Company Number: GR-ABBOTT-11P-066-0714014-00

PATIENT
  Age: 64 Year
  Sex: Male
  Weight: 79 kg

DRUGS (8)
  1. OMEPRAZOLE [Concomitant]
     Indication: GASTRIC DISORDER
     Route: 048
  2. SIMVASTATIN [Concomitant]
     Indication: DYSLIPIDAEMIA
     Route: 048
  3. ACETYLSALICYLIC ACID [Concomitant]
     Indication: CORONARY ARTERY DISEASE
     Route: 048
     Dates: start: 19960101
  4. KARVEXILOLE [Concomitant]
     Indication: CORONARY ARTERY DISEASE
     Route: 048
     Dates: start: 19960101
  5. ISOSORBIDE MONONITRATE [Concomitant]
     Indication: CORONARY ARTERY DISEASE
     Route: 048
     Dates: start: 19960101
  6. HUMIRA [Suspect]
     Indication: PSORIASIS
     Route: 058
     Dates: start: 20101123, end: 20110324
  7. OMEPRAZOLE [Concomitant]
     Indication: PROPHYLAXIS
  8. ALPRAZOLAME [Concomitant]
     Indication: SLEEP DISORDER
     Route: 048

REACTIONS (2)
  - MYCOSIS FUNGOIDES [None]
  - PRURITUS [None]
